FAERS Safety Report 23184913 (Version 2)
Quarter: 2023Q4

REPORT INFORMATION
  Report Type: Spontaneous
  Country: US (occurrence: US)
  Receive Date: 20231115
  Receipt Date: 20231120
  Transmission Date: 20240109
  Serious: No
  Sender: FDA-Public Use
  Company Number: US-ELI_LILLY_AND_COMPANY-US202311007716

PATIENT
  Sex: Female

DRUGS (4)
  1. TRULICITY [Suspect]
     Active Substance: DULAGLUTIDE
     Indication: Glucose tolerance impaired
     Dosage: 4.5 MG, UNKNOWN
     Route: 065
  2. TRULICITY [Suspect]
     Active Substance: DULAGLUTIDE
     Indication: Glucose tolerance impaired
     Dosage: 4.5 MG, UNKNOWN
     Route: 065
  3. TRULICITY [Suspect]
     Active Substance: DULAGLUTIDE
     Indication: Polycystic ovarian syndrome
     Dosage: 4.5 MG, UNKNOWN
     Route: 065
     Dates: start: 202206
  4. TRULICITY [Suspect]
     Active Substance: DULAGLUTIDE
     Indication: Polycystic ovarian syndrome
     Dosage: 4.5 MG, UNKNOWN
     Route: 065
     Dates: start: 202206

REACTIONS (2)
  - Injection site pain [Unknown]
  - Off label use [Unknown]
